FAERS Safety Report 9738490 (Version 1)
Quarter: 2013Q4

REPORT INFORMATION
  Report Type: Spontaneous
  Country: BR (occurrence: BR)
  Receive Date: 20131208
  Receipt Date: 20131208
  Transmission Date: 20140711
  Serious: Yes (Hospitalization)
  Sender: FDA-Public Use
  Company Number: BR-MYLANLABS-2013S1027096

PATIENT
  Age: 19 Year
  Sex: Female

DRUGS (7)
  1. CLOZAPINE [Suspect]
     Indication: SCHIZOPHRENIA, DISORGANISED TYPE
     Dosage: 12.5 MG/D INCREASING BY 25MG EVERY 2D UNTIL 100 MG/D REACHED
     Route: 065
  2. CLOZAPINE [Suspect]
     Indication: SCHIZOPHRENIA, DISORGANISED TYPE
     Dosage: 100 MG/D INCREASING BY 50 MG/D EVERY 2D
     Route: 065
  3. CLOZAPINE [Suspect]
     Indication: SCHIZOPHRENIA, DISORGANISED TYPE
     Dosage: 300 MG/D (TITRATION WAS STOPPED AT 300 MG/D)
     Route: 065
  4. RISPERIDONE [Concomitant]
     Indication: SCHIZOPHRENIA, DISORGANISED TYPE
     Dosage: 6 MG/D
     Route: 065
  5. OLANZAPINE [Concomitant]
     Indication: SCHIZOPHRENIA, DISORGANISED TYPE
     Dosage: 30 MG/D
     Route: 065
  6. CHLORPROMAZINE [Concomitant]
     Indication: SCHIZOPHRENIA, DISORGANISED TYPE
     Dosage: 100 MG/D
     Route: 065
  7. SODIUM VALPROATE [Concomitant]
     Indication: SCHIZOPHRENIA, DISORGANISED TYPE
     Dosage: 750 MG/D
     Route: 065

REACTIONS (8)
  - Eosinophilia [Recovered/Resolved]
  - Diarrhoea [Unknown]
  - Nausea [Unknown]
  - Abdominal pain [Unknown]
  - Weight increased [Unknown]
  - Salivary hypersecretion [Unknown]
  - White blood cell count increased [Recovered/Resolved]
  - Neutrophil count increased [Recovered/Resolved]
